FAERS Safety Report 9057725 (Version 1)
Quarter: 2013Q1

REPORT INFORMATION
  Report Type: Spontaneous
  Country: US (occurrence: None)
  Receive Date: 20130204
  Receipt Date: 20130204
  Transmission Date: 20140127
  Serious: No
  Sender: FDA-Public Use
  Company Number: None

PATIENT
  Age: 66 Year
  Sex: Male
  Weight: 98.9 kg

DRUGS (1)
  1. EXENATIDE [Suspect]
     Route: 048
     Dates: start: 20120306, end: 20120911

REACTIONS (3)
  - Hepatic enzyme increased [None]
  - Amylase increased [None]
  - Lipase increased [None]
